FAERS Safety Report 6431725-4 (Version None)
Quarter: 2009Q4

REPORT INFORMATION
  Report Type: 
  Country: None (occurrence: None)
  Receive Date: 20091103
  Receipt Date: 20091019
  Transmission Date: 20100525
  Serious: Yes (Hospitalization)
  Sender: FDA-Public Use
  Company Number: 02100-JPN-07-0568

PATIENT
  Age: 68 Year
  Sex: Male
  Weight: 69 kg

DRUGS (6)
  1. PLETAL [Suspect]
     Indication: CEREBRAL INFARCTION
     Dosage: 100 MG, BID, ORAL
     Route: 048
     Dates: start: 20050118, end: 20070904
  2. ALTAT (ROXATIDINE ACETATE HYDROCHLORIDE) [Concomitant]
  3. TAMSULOSIN HCL [Concomitant]
  4. MAINTATE (BISOPROLOL FUMARATE) [Concomitant]
  5. LOXONIN (LOXOPROFEN SODIUM) [Concomitant]
  6. MUCOSTA (REBAMIPIDE) [Concomitant]

REACTIONS (2)
  - DRUG INEFFECTIVE [None]
  - TRANSIENT ISCHAEMIC ATTACK [None]
